FAERS Safety Report 11291618 (Version 1)
Quarter: 2015Q3

REPORT INFORMATION
  Report Type: Spontaneous
  Country: US (occurrence: US)
  Receive Date: 20150722
  Receipt Date: 20150722
  Transmission Date: 20151125
  Serious: No
  Sender: FDA-Public Use
  Company Number: US-PFIZER INC-2015240744

PATIENT
  Age: 54 Year
  Sex: Female

DRUGS (1)
  1. XELJANZ [Suspect]
     Active Substance: TOFACITINIB CITRATE
     Dosage: UNK

REACTIONS (8)
  - Attention deficit/hyperactivity disorder [Unknown]
  - Presyncope [Unknown]
  - Post-traumatic stress disorder [Unknown]
  - Sleep disorder [Unknown]
  - Anxiety [Unknown]
  - Osteoporosis [Unknown]
  - Obsessive-compulsive disorder [Unknown]
  - Fibromyalgia [Unknown]
